FAERS Safety Report 4363813-0 (Version None)
Quarter: 2004Q2

REPORT INFORMATION
  Report Type: 
  Country: None (occurrence: None)
  Receive Date: 20040521
  Receipt Date: 20040429
  Transmission Date: 20050107
  Serious: Yes (Other)
  Sender: FDA-Public Use
  Company Number: 200410120BBE

PATIENT
  Sex: Male

DRUGS (2)
  1. ANTIHEMOPHILIC FACTOR (HUMAN) [Suspect]
     Indication: HAEMOPHILIA
     Dates: start: 19740101, end: 19900101
  2. PROPLEX [Suspect]
     Indication: HAEMOPHILIA
     Dates: start: 19740101, end: 19900101

REACTIONS (1)
  - HEPATITIS C VIRUS [None]
